FAERS Safety Report 6861274-0 (Version None)
Quarter: 2010Q3

REPORT INFORMATION
  Report Type: 
  Country: None (occurrence: None)
  Receive Date: 20100720
  Receipt Date: 20100708
  Transmission Date: 20110219
  Serious: Yes (Hospitalization)
  Sender: FDA-Public Use
  Company Number: KR-TYCO HEALTHCARE/MALLINCKRODT-T201001578

PATIENT
  Age: 39 Year
  Sex: Female
  Weight: 76.7 kg

DRUGS (7)
  1. FLUOXETINE HCL [Suspect]
     Indication: OBESITY
     Dosage: 10 MG, BID FOR TWO DAYS
     Route: 048
  2. AMINOPHYLLINE [Suspect]
     Indication: MESOTHERAPY
     Dosage: ONCE PER DAY FOR TWO DAYS
     Route: 058
  3. EPINEPHRINE [Suspect]
     Indication: MESOTHERAPY
     Dosage: ONCE A DAY FOR TWO DAYS
     Route: 058
  4. EPHEDRINE HYDROCHLORIDE [Suspect]
     Indication: OBESITY
     Dosage: 10 MG, BID FOR TWO DAYS
     Route: 048
  5. CAFFEINE [Suspect]
     Indication: OBESITY
     Dosage: 50 MG, BID FOR TWO DAYS
     Route: 048
  6. TEA, GREEN [Suspect]
     Indication: OBESITY
     Dosage: 250 MG, BID FOR TWO DAYS
     Route: 048
  7. LIDOCAINE [Concomitant]
     Indication: MESOTHERAPY
     Dosage: ONCE PER DAY FOR TWO DAYS
     Route: 058

REACTIONS (2)
  - COLITIS ISCHAEMIC [None]
  - OFF LABEL USE [None]
